FAERS Safety Report 9987092 (Version 1)
Quarter: 2014Q1

REPORT INFORMATION
  Report Type: Report from Study
  Country: US (occurrence: US)
  Receive Date: 20140307
  Receipt Date: 20140307
  Transmission Date: 20141002
  Serious: No
  Sender: FDA-Public Use
  Company Number: US-ABBVIE-13P-163-1080969-00

PATIENT
  Age: 65 Year
  Sex: Female

DRUGS (10)
  1. HUMIRA [Suspect]
     Indication: CROHN^S DISEASE
     Route: 058
     Dates: start: 20130103, end: 20130103
  2. HUMIRA [Suspect]
     Route: 058
     Dates: start: 20130104, end: 20130104
  3. HUMIRA [Suspect]
     Route: 058
     Dates: end: 201303
  4. HUMIRA [Suspect]
     Route: 058
  5. HUMIRA [Suspect]
     Route: 058
  6. PENTASA [Concomitant]
     Indication: PAIN
     Dates: start: 20130420
  7. ZOLOFT [Concomitant]
     Indication: PRODUCT USED FOR UNKNOWN INDICATION
     Dosage: DAILY
  8. LORAZEPAM [Concomitant]
     Indication: PRODUCT USED FOR UNKNOWN INDICATION
     Dosage: BEFORE BED
  9. TYLENOL [Concomitant]
     Indication: PRODUCT USED FOR UNKNOWN INDICATION
  10. IMODIUM [Concomitant]
     Indication: PRODUCT USED FOR UNKNOWN INDICATION

REACTIONS (5)
  - Crohn^s disease [Not Recovered/Not Resolved]
  - Abdominal pain lower [Not Recovered/Not Resolved]
  - Defaecation urgency [Not Recovered/Not Resolved]
  - Medication error [Unknown]
  - Injection site bruising [Recovering/Resolving]
